FAERS Safety Report 5560665-8 (Version None)
Quarter: 2007Q4

REPORT INFORMATION
  Report Type: 
  Country: None (occurrence: None)
  Receive Date: 20071215
  Receipt Date: 20071114
  Transmission Date: 20080405
  Serious: No
  Sender: FDA-Public Use
  Company Number: US-ABBOTT-07P-163-0424885-00

PATIENT
  Sex: Male
  Weight: 82.628 kg

DRUGS (4)
  1. HUMIRA [Suspect]
     Indication: PSORIATIC ARTHROPATHY
     Route: 058
     Dates: start: 20071113
  2. ATENOLOL [Concomitant]
     Indication: BLOOD PRESSURE
     Route: 048
     Dates: start: 19870101
  3. ANTERA [Concomitant]
     Indication: BLOOD CHOLESTEROL
     Route: 048
     Dates: start: 20070501
  4. ANTERA [Concomitant]
     Indication: BLOOD TRIGLYCERIDES

REACTIONS (2)
  - INJECTION SITE PAIN [None]
  - NAUSEA [None]
